FAERS Safety Report 5534512-4 (Version None)
Quarter: 2007Q4

REPORT INFORMATION
  Report Type: 
  Country: None (occurrence: None)
  Receive Date: 20071204
  Receipt Date: 20071204
  Transmission Date: 20080405
  Serious: Yes (Other)
  Sender: FDA-Public Use
  Company Number: None

PATIENT
  Age: 40 Year
  Sex: Female
  Weight: 56.6996 kg

DRUGS (2)
  1. LYBREL [Suspect]
     Indication: MENORRHAGIA
     Dosage: 1  PER DAY  PO
     Route: 048
     Dates: start: 20071114, end: 20071130
  2. LYBREL [Suspect]
     Indication: PREMENSTRUAL SYNDROME
     Dosage: 1  PER DAY  PO
     Route: 048
     Dates: start: 20071114, end: 20071130

REACTIONS (3)
  - DYSPNOEA [None]
  - HAEMORRHAGE [None]
  - VENTRICULAR EXTRASYSTOLES [None]
